FAERS Safety Report 7718535-2 (Version None)
Quarter: 2011Q3

REPORT INFORMATION
  Report Type: 
  Country: None (occurrence: None)
  Receive Date: 20110830
  Receipt Date: 20110816
  Transmission Date: 20111222
  Serious: Yes (Hospitalization)
  Sender: FDA-Public Use
  Company Number: US-UCBSA-039521

PATIENT
  Sex: Female
  Weight: 59.09 kg

DRUGS (12)
  1. ORTHO TRI-CYCLEN [Concomitant]
     Indication: ORAL CONTRACEPTION
     Route: 048
  2. FENTANYL [Concomitant]
     Dosage: 50 MCG EVERY 72 HOURS
  3. VALCYTE [Concomitant]
     Dosage: 450 MG TWO TWICE DAILY
     Route: 048
  4. FENTANYL [Concomitant]
     Dosage: 75 MCG AS DIRECTED
     Route: 062
  5. LOVENOX [Concomitant]
     Dosage: TOTAL DAILY DOSE: 90 MG
     Route: 058
  6. FONDAPARINUX SODIUM [Concomitant]
     Dosage: TOTAL DIALY DOSE: 2.5 MG
     Route: 058
  7. CLONAZEPAM [Concomitant]
  8. MULTI-VITAMINS [Concomitant]
  9. HYDROMORPHONE HCL [Concomitant]
     Dosage: 2 MG, EVERY 4-6 HOURS
     Route: 048
  10. CIMZIA [Suspect]
     Indication: CROHN'S DISEASE
     Route: 058
     Dates: start: 20101013
  11. COUMADIN [Concomitant]
     Dosage: TOTAL DIALY DOSE: 7.5 MG
  12. ALBUTEROL SULFATE AUTOHALER [Concomitant]
     Dosage: 2 PUFFS FOUR TIMES DAILY

REACTIONS (3)
  - PORTAL VEIN THROMBOSIS [None]
  - CROHN'S DISEASE [None]
  - CYTOMEGALOVIRUS INFECTION [None]
